FAERS Safety Report 9659912 (Version 3)
Quarter: 2013Q4

REPORT INFORMATION
  Report Type: Report from Study
  Country: CA (occurrence: CA)
  Receive Date: 20131031
  Receipt Date: 20131121
  Transmission Date: 20140711
  Serious: Yes (Hospitalization, Other)
  Sender: FDA-Public Use
  Company Number: CA-ABBVIE-13P-028-1162564-00

PATIENT
  Sex: Male
  Weight: 64.92 kg

DRUGS (2)
  1. HUMIRA [Suspect]
     Indication: COLITIS ULCERATIVE
     Route: 058
     Dates: start: 20130524
  2. NEXIUM [Concomitant]
     Indication: DYSPEPSIA
     Route: 048
     Dates: start: 2008

REACTIONS (4)
  - Gastrointestinal disorder [Recovering/Resolving]
  - Colitis ulcerative [Recovering/Resolving]
  - Colitis ulcerative [Unknown]
  - Drug ineffective [Not Recovered/Not Resolved]
